FAERS Safety Report 9318915 (Version 2)
Quarter: 2013Q2

REPORT INFORMATION
  Report Type: Spontaneous
  Country: VE (occurrence: VE)
  Receive Date: 20130530
  Receipt Date: 20130606
  Transmission Date: 20140414
  Serious: Yes (Hospitalization)
  Sender: FDA-Public Use
  Company Number: VE-PFIZER INC-2013163124

PATIENT
  Age: 55 Year
  Sex: Male

DRUGS (2)
  1. LIPITOR [Suspect]
     Indication: HYPERCHOLESTEROLAEMIA
     Dosage: 10 MG, DAILY
     Route: 048
     Dates: start: 2008
  2. LIPITOR [Suspect]
     Indication: HYPERTRIGLYCERIDAEMIA

REACTIONS (2)
  - Blood pressure increased [Recovered/Resolved]
  - Blood glucose increased [Recovered/Resolved]
